FAERS Safety Report 12361609 (Version 1)
Quarter: 2016Q2

REPORT INFORMATION
  Report Type: Spontaneous
  Country: US (occurrence: US)
  Receive Date: 20160512
  Receipt Date: 20160512
  Transmission Date: 20160815
  Serious: No
  Sender: FDA-Public Use
  Company Number: US-SA-2016SA056385

PATIENT
  Age: 69 Year
  Sex: Male

DRUGS (4)
  1. APAP [Concomitant]
     Active Substance: ACETAMINOPHEN
  2. PRALUENT [Suspect]
     Active Substance: ALIROCUMAB
     Indication: TYPE IIA HYPERLIPIDAEMIA
     Route: 058
     Dates: start: 20160303
  3. ALIROCUMAB PREFILLED PEN [Concomitant]
     Active Substance: ALIROCUMAB
     Indication: TYPE IIA HYPERLIPIDAEMIA
     Dates: start: 20160303
  4. ASA [Concomitant]
     Active Substance: ASPIRIN

REACTIONS (8)
  - Influenza like illness [Unknown]
  - Cough [Unknown]
  - Injection site bruising [Unknown]
  - Rhinorrhoea [Unknown]
  - Myalgia [Unknown]
  - Diarrhoea [Unknown]
  - Injection site discolouration [Unknown]
  - Myalgia [Unknown]

NARRATIVE: CASE EVENT DATE: 2016
